FAERS Safety Report 9379908 (Version 1)
Quarter: 2013Q3

REPORT INFORMATION
  Report Type: Spontaneous
  Country: US (occurrence: US)
  Receive Date: 20130702
  Receipt Date: 20130702
  Transmission Date: 20140515
  Serious: Yes (Disabling)
  Sender: FDA-Public Use
  Company Number: US-JNJFOC-20130618873

PATIENT
  Age: 69 Year
  Sex: Female
  Weight: 99.79 kg

DRUGS (2)
  1. XARELTO [Suspect]
     Indication: DEEP VEIN THROMBOSIS
     Route: 050
     Dates: start: 20121220, end: 20130329
  2. XARELTO [Suspect]
     Indication: DEEP VEIN THROMBOSIS
     Route: 050

REACTIONS (3)
  - Cough [Unknown]
  - Dyspnoea [Unknown]
  - Incorrect route of drug administration [Unknown]
